FAERS Safety Report 9164126 (Version 3)
Quarter: 2013Q2

REPORT INFORMATION
  Report Type: Spontaneous
  Country: IE (occurrence: IE)
  Receive Date: 20130315
  Receipt Date: 20130502
  Transmission Date: 20140414
  Serious: Yes (Other)
  Sender: FDA-Public Use
  Company Number: IE-AMGEN-IRLSP2013015394

PATIENT
  Age: 64 Year
  Sex: Female
  Weight: 84 kg

DRUGS (4)
  1. PROLIA [Suspect]
     Indication: OSTEOPOROSIS POSTMENOPAUSAL
     Dosage: 60 MG, Q6MO
     Route: 058
     Dates: start: 201111
  2. CALCICHEW D3 [Concomitant]
     Indication: OSTEOPOROSIS
     Dosage: UNK UNK, BID
     Route: 048
     Dates: start: 2007
  3. TENORET [Concomitant]
     Indication: HYPERTENSION
     Dosage: 50 MG, QD
     Route: 048
     Dates: start: 2005
  4. NEXIUM                             /01479302/ [Concomitant]
     Indication: REFLUX GASTRITIS
     Dosage: 40 MG, QD
     Route: 048
     Dates: start: 2005

REACTIONS (1)
  - Breast cancer [Unknown]
